FAERS Safety Report 18392339 (Version 1)
Quarter: 2020Q4

REPORT INFORMATION
  Report Type: Spontaneous
  Country: US (occurrence: US)
  Receive Date: 20201016
  Receipt Date: 20201016
  Transmission Date: 20210114
  Serious: Yes (Hospitalization)
  Sender: FDA-Public Use
  Company Number: None

PATIENT
  Age: 53 Year
  Sex: Female

DRUGS (2)
  1. METHOTREXATE 2.5MG [Concomitant]
     Active Substance: METHOTREXATE
     Dates: start: 20180307
  2. ENBREL [Suspect]
     Active Substance: ETANERCEPT
     Indication: RHEUMATOID ARTHRITIS
     Dosage: ?          OTHER FREQUENCY:ONCE A WEEK;?
     Route: 058
     Dates: start: 20140620

REACTIONS (3)
  - Product dose omission issue [None]
  - Carpal tunnel syndrome [None]
  - Inflammation [None]

NARRATIVE: CASE EVENT DATE: 20201015
